FAERS Safety Report 11180811 (Version 1)
Quarter: 2015Q2

REPORT INFORMATION
  Report Type: Spontaneous
  Country: SE (occurrence: SE)
  Receive Date: 20150611
  Receipt Date: 20150611
  Transmission Date: 20150821
  Serious: Yes (Other)
  Sender: FDA-Public Use
  Company Number: SE-WATSON-2015-11355

PATIENT
  Sex: Female

DRUGS (1)
  1. RISPERIDON ACTAVIS [Suspect]
     Active Substance: RISPERIDONE
     Indication: PRODUCT USED FOR UNKNOWN INDICATION
     Dosage: 2 MG, QPM
     Route: 048

REACTIONS (2)
  - Grimacing [Not Recovered/Not Resolved]
  - Formication [Not Recovered/Not Resolved]
